FAERS Safety Report 10219360 (Version 1)
Quarter: 2014Q2

REPORT INFORMATION
  Report Type: Spontaneous
  Country: CA (occurrence: None)
  Receive Date: 20140603
  Receipt Date: 20140603
  Transmission Date: 20141212
  Serious: Yes (Other)
  Sender: FDA-Public Use
  Company Number: 2368167

PATIENT
  Age: 18 Year
  Sex: Female
  Weight: 45 kg

DRUGS (5)
  1. PROPOFOL [Suspect]
     Indication: SEDATION
     Route: 042
  2. PROPOFOL [Suspect]
     Indication: ANALGESIC THERAPY
     Route: 042
  3. KETAMINE [Suspect]
     Indication: SEDATION
     Route: 042
  4. KETAMINE [Suspect]
     Indication: ANALGESIC THERAPY
     Route: 042
  5. MORPHINE SULFATE [Concomitant]

REACTIONS (1)
  - Unevaluable event [None]
